FAERS Safety Report 19267409 (Version 1)
Quarter: 2021Q2

REPORT INFORMATION
  Report Type: Spontaneous
  Country: US (occurrence: US)
  Receive Date: 20210518
  Receipt Date: 20210518
  Transmission Date: 20210717
  Serious: No
  Sender: FDA-Public Use
  Company Number: US-CELLTRION INC.-2021US002329

PATIENT

DRUGS (4)
  1. TRUXIMA [Suspect]
     Active Substance: RITUXIMAB-ABBS
     Indication: ARTERITIS
     Dosage: 1000 MG, EVERY 9 MONTHS
     Route: 042
     Dates: start: 20170711
  2. TRUXIMA [Suspect]
     Active Substance: RITUXIMAB-ABBS
     Dosage: 1000 MG, EVERY 9 MONTHS
     Route: 042
     Dates: start: 20190521
  3. TRUXIMA [Suspect]
     Active Substance: RITUXIMAB-ABBS
     Dosage: 1000 MG, EVERY 9 MONTHS
     Route: 042
     Dates: start: 20180518
  4. TRUXIMA [Suspect]
     Active Substance: RITUXIMAB-ABBS
     Dosage: 1000 MG, EVERY 9 MONTHS
     Route: 042
     Dates: start: 20200603

REACTIONS (1)
  - Off label use [Not Recovered/Not Resolved]
